FAERS Safety Report 9365146 (Version 1)
Quarter: 2013Q2

REPORT INFORMATION
  Report Type: Spontaneous
  Country: AT (occurrence: AT)
  Receive Date: 20130624
  Receipt Date: 20130624
  Transmission Date: 20140414
  Serious: Yes (Other)
  Sender: FDA-Public Use
  Company Number: PHHY2013AT062660

PATIENT
  Age: 27 Year
  Sex: Female

DRUGS (6)
  1. DOXORUBICIN [Suspect]
     Indication: EWING^S SARCOMA
     Dosage: 20 MG/M2, UNK
  2. ETOPOSIDE [Suspect]
     Indication: EWING^S SARCOMA
     Dosage: 150 MG/M2, UNK
  3. VINCRISTINE [Suspect]
     Indication: EWING^S SARCOMA
     Dosage: 2 MG, UNK
  4. IFOSFAMIDE [Suspect]
     Indication: EWING^S SARCOMA
     Dosage: 3000 MG/M2, UNK
  5. MIFEPRISTONE [Concomitant]
  6. MISOPROSTOL [Concomitant]

REACTIONS (3)
  - Foetal death [Unknown]
  - Oligohydramnios [Unknown]
  - Maternal exposure during pregnancy [Unknown]
